FAERS Safety Report 8480311-3 (Version None)
Quarter: 2012Q2

REPORT INFORMATION
  Report Type: 
  Country: None (occurrence: None)
  Receive Date: 20120629
  Receipt Date: 20120619
  Transmission Date: 20120825
  Serious: No
  Sender: FDA-Public Use
  Company Number: US-ASTRAZENECA-2012SE41560

PATIENT
  Sex: Female

DRUGS (3)
  1. SEROQUEL [Suspect]
     Route: 048
     Dates: start: 20090901
  2. SEROQUEL [Suspect]
     Route: 048
  3. SEROQUEL [Suspect]
     Route: 048

REACTIONS (10)
  - DISTURBANCE IN ATTENTION [None]
  - INSOMNIA [None]
  - HYPOAESTHESIA [None]
  - DRUG EFFECT INCREASED [None]
  - DEPRESSED MOOD [None]
  - BURNING SENSATION [None]
  - TACHYPHRENIA [None]
  - AGITATION [None]
  - PAIN [None]
  - ASTHENIA [None]
